FAERS Safety Report 17992636 (Version 2)
Quarter: 2020Q3

REPORT INFORMATION
  Report Type: Spontaneous
  Country: IQ (occurrence: IQ)
  Receive Date: 20200707
  Receipt Date: 20200807
  Transmission Date: 20201103
  Serious: Yes (Other)
  Sender: FDA-Public Use
  Company Number: NVSC2020IQ189362

PATIENT
  Sex: Male

DRUGS (5)
  1. CHLOROQUINE. [Suspect]
     Active Substance: CHLOROQUINE
     Indication: FOETAL EXPOSURE DURING PREGNANCY
     Dosage: MATERNAL DOSE: 200 MG, BID
     Route: 064
  2. SALINE [Suspect]
     Active Substance: SODIUM CHLORIDE
     Indication: FOETAL EXPOSURE DURING PREGNANCY
     Dosage: UNK
     Route: 064
  3. ACETAMINOPHEN (PARACETAMOL) [Suspect]
     Active Substance: ACETAMINOPHEN
     Indication: FOETAL EXPOSURE DURING PREGNANCY
     Dosage: MATERNAL DOSE: 1000 MG PER 100 ML
     Route: 064
  4. GLUCOSE [Suspect]
     Active Substance: DEXTROSE
     Indication: FOETAL EXPOSURE DURING PREGNANCY
     Dosage: UNK
     Route: 064
  5. SALBUTAMOL [Suspect]
     Active Substance: ALBUTEROL
     Indication: FOETAL EXPOSURE DURING PREGNANCY
     Dosage: MATERNAL DOSE: 2 MG
     Route: 064

REACTIONS (3)
  - Premature baby [Unknown]
  - Foetal exposure during pregnancy [Unknown]
  - Low birth weight baby [Unknown]
